FAERS Safety Report 4726906-1 (Version None)
Quarter: 2005Q3

REPORT INFORMATION
  Report Type: 
  Country: None (occurrence: None)
  Receive Date: 20050726
  Receipt Date: 20050706
  Transmission Date: 20060218
  Serious: Yes (Hospitalization)
  Sender: FDA-Public Use
  Company Number: 05-0083PO

PATIENT
  Age: 38 Year
  Sex: Female

DRUGS (6)
  1. PONTAL (MEFENAMIC ACID) [Suspect]
     Indication: PYREXIA
     Dosage: 750 MG, DAILY, ORAL
     Route: 048
     Dates: start: 19980918, end: 19980923
  2. MINOCYCLINE HCL [Concomitant]
  3. VOLTAREN [Concomitant]
  4. TIENAM (CILASTATIN IMIPENEM) [Concomitant]
  5. EXACIN (LSEPAMICIN SULFATE) [Concomitant]
  6. PREDNISONE [Concomitant]

REACTIONS (10)
  - ARTHRALGIA [None]
  - CONDITION AGGRAVATED [None]
  - DEPRESSED LEVEL OF CONSCIOUSNESS [None]
  - DISSEMINATED INTRAVASCULAR COAGULATION [None]
  - DRUG ERUPTION [None]
  - HEPATIC FUNCTION ABNORMAL [None]
  - JUVENILE ARTHRITIS [None]
  - NAUSEA [None]
  - PHARYNGITIS [None]
  - STEVENS-JOHNSON SYNDROME [None]
